FAERS Safety Report 26065538 (Version 1)
Quarter: 2025Q4

REPORT INFORMATION
  Report Type: Report from Study
  Country: TR (occurrence: TR)
  Receive Date: 20251119
  Receipt Date: 20251119
  Transmission Date: 20260118
  Serious: Yes (Death)
  Sender: TEVA
  Company Number: TR-TEVA-VS-3393749

PATIENT

DRUGS (3)
  1. SILDENAFIL [Interacting]
     Active Substance: SILDENAFIL
     Indication: Product used for unknown indication
     Route: 065
  2. METOCLOPRAMIDE [Concomitant]
     Active Substance: METOCLOPRAMIDE
     Indication: Product used for unknown indication
     Route: 065
  3. PANTOPRAZOLE [Interacting]
     Active Substance: PANTOPRAZOLE
     Indication: Product used for unknown indication
     Route: 065

REACTIONS (2)
  - Cardiac failure [Fatal]
  - Drug interaction [Fatal]
